FAERS Safety Report 12394071 (Version 1)
Quarter: 2016Q2

REPORT INFORMATION
  Report Type: Spontaneous
  Country: US (occurrence: US)
  Receive Date: 20160523
  Receipt Date: 20160523
  Transmission Date: 20160815
  Serious: No
  Sender: FDA-Public Use
  Company Number: PHHY2011US125046

PATIENT
  Age: 24 Year
  Sex: Female

DRUGS (2)
  1. NO CONCURRENT MEDICATION [Concomitant]
     Active Substance: UNSPECIFIED INGREDIENT
     Indication: PRODUCT USED FOR UNKNOWN INDICATION
     Route: 065
  2. ZOFRAN [Suspect]
     Active Substance: ONDANSETRON HYDROCHLORIDE
     Indication: PROPHYLAXIS OF NAUSEA AND VOMITING
     Dosage: PRN
     Route: 048
     Dates: start: 201106, end: 20110712

REACTIONS (5)
  - Dizziness [Not Recovered/Not Resolved]
  - Abasia [None]
  - Dizziness [None]
  - Muscular weakness [None]
  - Exposure during pregnancy [None]

NARRATIVE: CASE EVENT DATE: 20110716
